FAERS Safety Report 25306520 (Version 1)
Quarter: 2025Q2

REPORT INFORMATION
  Report Type: Report from Study
  Country: PK (occurrence: PK)
  Receive Date: 20250513
  Receipt Date: 20250513
  Transmission Date: 20250717
  Serious: Yes (Other)
  Sender: ROCHE
  Company Number: PK-ROCHE-10000280489

PATIENT
  Age: 32 Year
  Sex: Female

DRUGS (3)
  1. PERJETA [Suspect]
     Active Substance: PERTUZUMAB
     Indication: Breast cancer metastatic
     Dosage: SOLUTION
     Route: 042
     Dates: start: 20240816
  2. PERJETA [Suspect]
     Active Substance: PERTUZUMAB
     Dosage: SOLUTION
     Route: 042
     Dates: start: 20240816
  3. PERJETA [Suspect]
     Active Substance: PERTUZUMAB
     Dosage: SOLUTION
     Route: 042
     Dates: start: 20240816

REACTIONS (1)
  - Breast cancer metastatic [Unknown]
